FAERS Safety Report 7238470-6 (Version None)
Quarter: 2011Q1

REPORT INFORMATION
  Report Type: 
  Country: None (occurrence: None)
  Receive Date: 20110119
  Receipt Date: 20110119
  Transmission Date: 20110831
  Serious: Yes (Life-Threatening)
  Sender: FDA-Public Use
  Company Number: None

PATIENT
  Sex: Male
  Weight: 104.3273 kg

DRUGS (2)
  1. ELIGARD [Suspect]
     Indication: NEOPLASM MALIGNANT
     Dosage: 45 MGS 1 SHOT SQ
     Dates: start: 20110107
  2. LANTUS [Suspect]
     Indication: DIABETES MELLITUS
     Dosage: 17 UNITS TWICE A DAY AM+PM IM
     Route: 030
     Dates: start: 20020901, end: 20110114

REACTIONS (2)
  - NEOPLASM RECURRENCE [None]
  - PROSTATE CANCER [None]
